FAERS Safety Report 4846286-0 (Version None)
Quarter: 2005Q4

REPORT INFORMATION
  Report Type: 
  Country: None (occurrence: None)
  Receive Date: 20051206
  Receipt Date: 20051130
  Transmission Date: 20060501
  Serious: Yes (Hospitalization)
  Sender: FDA-Public Use
  Company Number: AU-ROCHE-426532

PATIENT
  Age: 59 Year
  Sex: Male
  Weight: 80 kg

DRUGS (1)
  1. CEFTRIAXONE SODIUM [Suspect]
     Route: 042
     Dates: start: 20031115, end: 20031116

REACTIONS (2)
  - PEMPHIGUS [None]
  - RASH GENERALISED [None]
